FAERS Safety Report 18529386 (Version 61)
Quarter: 2025Q1

REPORT INFORMATION
  Report Type: Spontaneous
  Country: GB (occurrence: GB)
  Receive Date: 20201120
  Receipt Date: 20250116
  Transmission Date: 20250409
  Serious: Yes (Other)
  Sender: BAUSCH AND LOMB
  Company Number: None

PATIENT
  Age: 36 Year
  Sex: Male

DRUGS (60)
  1. METFORMIN HYDROCHLORIDE [Suspect]
     Active Substance: METFORMIN HYDROCHLORIDE
     Indication: Product used for unknown indication
     Route: 048
  2. METFORMIN HYDROCHLORIDE [Suspect]
     Active Substance: METFORMIN HYDROCHLORIDE
     Route: 065
  3. METFORMIN [Suspect]
     Active Substance: METFORMIN HYDROCHLORIDE
     Indication: Product used for unknown indication
     Route: 048
  4. METFORMIN [Suspect]
     Active Substance: METFORMIN HYDROCHLORIDE
     Route: 048
  5. METFORMIN [Suspect]
     Active Substance: METFORMIN HYDROCHLORIDE
     Route: 048
  6. METFORMIN [Suspect]
     Active Substance: METFORMIN HYDROCHLORIDE
     Route: 048
  7. METFORMIN [Suspect]
     Active Substance: METFORMIN HYDROCHLORIDE
     Route: 048
  8. METFORMIN [Suspect]
     Active Substance: METFORMIN HYDROCHLORIDE
     Route: 048
  9. METFORMIN [Suspect]
     Active Substance: METFORMIN HYDROCHLORIDE
     Route: 048
  10. METFORMIN [Suspect]
     Active Substance: METFORMIN HYDROCHLORIDE
     Route: 048
  11. TAMSULOSIN [Suspect]
     Active Substance: TAMSULOSIN
     Indication: Product used for unknown indication
     Route: 048
  12. ATORVASTATIN CALCIUM [Suspect]
     Active Substance: ATORVASTATIN CALCIUM
     Indication: Product used for unknown indication
     Route: 048
  13. QUETIAPINE FUMARATE [Suspect]
     Active Substance: QUETIAPINE FUMARATE
     Indication: Product used for unknown indication
     Route: 048
  14. QUETIAPINE FUMARATE [Suspect]
     Active Substance: QUETIAPINE FUMARATE
     Route: 048
  15. QUETIAPINE FUMARATE [Suspect]
     Active Substance: QUETIAPINE FUMARATE
     Route: 065
  16. QUETIAPINE FUMARATE [Suspect]
     Active Substance: QUETIAPINE FUMARATE
     Route: 065
  17. AMLODIPINE BESYLATE [Suspect]
     Active Substance: AMLODIPINE BESYLATE
     Indication: Product used for unknown indication
     Route: 048
  18. GLIMEPIRIDE [Suspect]
     Active Substance: GLIMEPIRIDE
     Indication: Product used for unknown indication
     Route: 048
  19. GLIMEPIRIDE [Suspect]
     Active Substance: GLIMEPIRIDE
     Route: 048
  20. GLIMEPIRIDE [Suspect]
     Active Substance: GLIMEPIRIDE
     Route: 048
  21. INDAPAMIDE [Suspect]
     Active Substance: INDAPAMIDE
     Indication: Product used for unknown indication
     Route: 048
  22. INDAPAMIDE [Suspect]
     Active Substance: INDAPAMIDE
     Route: 065
  23. INDAPAMIDE [Suspect]
     Active Substance: INDAPAMIDE
     Route: 048
  24. INDAPAMIDE [Suspect]
     Active Substance: INDAPAMIDE
     Route: 065
  25. INDAPAMIDE [Suspect]
     Active Substance: INDAPAMIDE
     Route: 048
  26. PIOGLITAZONE [Suspect]
     Active Substance: PIOGLITAZONE
     Indication: Product used for unknown indication
     Route: 048
  27. PIOGLITAZONE [Suspect]
     Active Substance: PIOGLITAZONE
     Route: 065
  28. PIOGLITAZONE [Suspect]
     Active Substance: PIOGLITAZONE
     Route: 065
  29. PIOGLITAZONE [Suspect]
     Active Substance: PIOGLITAZONE
     Route: 048
  30. QUETIAPINE FUMARATE [Suspect]
     Active Substance: QUETIAPINE FUMARATE
     Indication: Product used for unknown indication
     Route: 048
  31. QUETIAPINE FUMARATE [Suspect]
     Active Substance: QUETIAPINE FUMARATE
     Route: 065
  32. QUETIAPINE FUMARATE [Suspect]
     Active Substance: QUETIAPINE FUMARATE
     Route: 048
  33. QUETIAPINE FUMARATE [Suspect]
     Active Substance: QUETIAPINE FUMARATE
     Route: 048
  34. AMLODIPINE [Suspect]
     Active Substance: AMLODIPINE BESYLATE
     Indication: Product used for unknown indication
     Route: 048
  35. AMLODIPINE [Suspect]
     Active Substance: AMLODIPINE BESYLATE
     Route: 048
  36. AMLODIPINE [Suspect]
     Active Substance: AMLODIPINE BESYLATE
     Route: 048
  37. AMISULPRIDE [Suspect]
     Active Substance: AMISULPRIDE
     Indication: Product used for unknown indication
     Route: 048
  38. CLOZAPINE [Suspect]
     Active Substance: CLOZAPINE
     Indication: Schizophrenia
     Route: 048
  39. CLOZAPINE [Suspect]
     Active Substance: CLOZAPINE
     Route: 048
     Dates: end: 20220317
  40. CLOZAPINE [Suspect]
     Active Substance: CLOZAPINE
     Route: 048
     Dates: end: 20220417
  41. CLOZAPINE [Suspect]
     Active Substance: CLOZAPINE
     Route: 048
     Dates: end: 20220317
  42. CLOZAPINE [Suspect]
     Active Substance: CLOZAPINE
     Route: 048
  43. CLOZAPINE [Suspect]
     Active Substance: CLOZAPINE
     Route: 048
     Dates: end: 20220417
  44. CLOZAPINE [Suspect]
     Active Substance: CLOZAPINE
     Route: 048
  45. CLOZAPINE [Suspect]
     Active Substance: CLOZAPINE
     Route: 048
     Dates: end: 20220417
  46. CLOZAPINE [Suspect]
     Active Substance: CLOZAPINE
     Route: 048
  47. QUETIAPINE [Suspect]
     Active Substance: QUETIAPINE
     Indication: Product used for unknown indication
     Route: 048
  48. QUETIAPINE [Suspect]
     Active Substance: QUETIAPINE
     Route: 048
  49. QUETIAPINE [Suspect]
     Active Substance: QUETIAPINE
     Route: 048
  50. QUETIAPINE [Suspect]
     Active Substance: QUETIAPINE
     Route: 065
  51. QUETIAPINE [Suspect]
     Active Substance: QUETIAPINE
     Route: 048
  52. QUETIAPINE [Suspect]
     Active Substance: QUETIAPINE
     Route: 048
  53. TAMSULOSIN HYDROCHLORIDE [Suspect]
     Active Substance: TAMSULOSIN HYDROCHLORIDE
     Indication: Product used for unknown indication
     Route: 048
  54. FINASTERIDE\TAMSULOSIN [Suspect]
     Active Substance: FINASTERIDE\TAMSULOSIN
     Indication: Product used for unknown indication
     Route: 065
  55. FINASTERIDE [Suspect]
     Active Substance: FINASTERIDE
     Indication: Product used for unknown indication
     Route: 065
  56. ATORVASTATIN [Suspect]
     Active Substance: ATORVASTATIN
     Indication: Product used for unknown indication
     Route: 048
  57. RAMIPRIL [Suspect]
     Active Substance: RAMIPRIL
     Indication: Product used for unknown indication
     Route: 048
  58. RAMIPRIL [Suspect]
     Active Substance: RAMIPRIL
     Route: 065
  59. TAMSULOSIN [Concomitant]
     Active Substance: TAMSULOSIN
     Indication: Product used for unknown indication
     Route: 065
  60. ATORVASTATIN [Concomitant]
     Active Substance: ATORVASTATIN
     Indication: Product used for unknown indication
     Route: 048

REACTIONS (7)
  - Hallucination, visual [Unknown]
  - Hyperthyroidism [Unknown]
  - Type 2 diabetes mellitus [Unknown]
  - Influenza [Unknown]
  - Neutropenia [Recovered/Resolved]
  - White blood cell count decreased [Recovered/Resolved]
  - White blood cell count increased [Recovered/Resolved]

NARRATIVE: CASE EVENT DATE: 20150101
